FAERS Safety Report 5798205-0 (Version None)
Quarter: 2008Q3

REPORT INFORMATION
  Report Type: 
  Country: None (occurrence: None)
  Receive Date: 20080702
  Receipt Date: 20080619
  Transmission Date: 20090109
  Serious: Yes (Other)
  Sender: FDA-Public Use
  Company Number: B0524166A

PATIENT
  Age: 84 Year
  Sex: Female

DRUGS (4)
  1. AUGMENTIN '125' [Suspect]
     Indication: DECUBITUS ULCER
     Dosage: 1G TWICE PER DAY
     Route: 058
     Dates: start: 20080522, end: 20080524
  2. NEUROLITHIUM [Concomitant]
     Indication: DRUG USE FOR UNKNOWN INDICATION
     Route: 065
  3. ATARAX 25 [Concomitant]
     Indication: DRUG USE FOR UNKNOWN INDICATION
     Dosage: 25MG PER DAY
     Route: 065
  4. ZOPICLONE [Concomitant]
     Indication: DRUG USE FOR UNKNOWN INDICATION
     Dosage: 7.5MG PER DAY
     Route: 065

REACTIONS (7)
  - INCORRECT ROUTE OF DRUG ADMINISTRATION [None]
  - INJECTION SITE HAEMORRHAGE [None]
  - INJECTION SITE INFLAMMATION [None]
  - OFF LABEL USE [None]
  - PAIN [None]
  - SKIN IRRITATION [None]
  - SKIN NECROSIS [None]
